FAERS Safety Report 13301529 (Version 1)
Quarter: 2017Q1

REPORT INFORMATION
  Report Type: Spontaneous
  Country: JP (occurrence: JP)
  Receive Date: 20170307
  Receipt Date: 20170307
  Transmission Date: 20170428
  Serious: Yes (Death, Other)
  Sender: FDA-Public Use
  Company Number: JP-009507513-1702JPN002248J

PATIENT
  Sex: Male
  Weight: 54.1 kg

DRUGS (3)
  1. E KEPPRA [Concomitant]
     Active Substance: LEVETIRACETAM
     Indication: SUBDURAL HAEMATOMA
     Dosage: 250 MG, BID
     Route: 051
     Dates: start: 20161012, end: 20161015
  2. MEROPENEM HYDRATE [Concomitant]
     Active Substance: MEROPENEM
     Indication: BACTERIAL INFECTION
     Dosage: 1 G, BID
     Route: 051
     Dates: start: 20161013, end: 20161015
  3. CANCIDAS [Suspect]
     Active Substance: CASPOFUNGIN ACETATE
     Indication: FEBRILE NEUTROPENIA
     Dosage: 50 MG, QD
     Route: 041
     Dates: start: 20161013, end: 20161015

REACTIONS (1)
  - Death [Fatal]
